FAERS Safety Report 15928625 (Version 1)
Quarter: 2019Q1

REPORT INFORMATION
  Report Type: Spontaneous
  Country: CO (occurrence: CO)
  Receive Date: 20190206
  Receipt Date: 20190206
  Transmission Date: 20190417
  Serious: Yes (Hospitalization, Other)
  Sender: FDA-Public Use
  Company Number: CO-PFIZER INC-2018277630

PATIENT
  Age: 64 Year
  Sex: Female

DRUGS (1)
  1. XELJANZ [Suspect]
     Active Substance: TOFACITINIB CITRATE
     Indication: RHEUMATOID ARTHRITIS
     Dosage: 5 MG, 2X/DAY (EVERY 12 HOURS)
     Route: 048
     Dates: start: 20180702, end: 20181119

REACTIONS (4)
  - Disease recurrence [Unknown]
  - Peritonitis [Unknown]
  - Rheumatoid arthritis [Unknown]
  - Appendicitis [Unknown]

NARRATIVE: CASE EVENT DATE: 20181119
